FAERS Safety Report 16565523 (Version 1)
Quarter: 2019Q3

REPORT INFORMATION
  Report Type: Spontaneous
  Country: US (occurrence: US)
  Receive Date: 20190531
  Receipt Date: 20190531
  Transmission Date: 20191004
  Serious: No
  Sender: FDA-Public Use
  Company Number: None

PATIENT

DRUGS (2)
  1. MITOMYCIN. [Suspect]
     Active Substance: MITOMYCIN
  2. MITOXANTRONE HCL [Suspect]
     Active Substance: MITOXANTRONE HYDROCHLORIDE

REACTIONS (6)
  - Wrong product administered [None]
  - Product label confusion [None]
  - Product dispensing error [None]
  - Device computer issue [None]
  - Infusion site discolouration [None]
  - Product name confusion [None]
